FAERS Safety Report 7352457-4 (Version None)
Quarter: 2011Q1

REPORT INFORMATION
  Report Type: 
  Country: None (occurrence: None)
  Receive Date: 20110301
  Receipt Date: 20101123
  Transmission Date: 20110831
  Serious: No
  Sender: FDA-Public Use
  Company Number: MC201000382

PATIENT
  Age: 11 Year
  Sex: Female
  Weight: 52 kg

DRUGS (3)
  1. AMLODIPINE [Concomitant]
  2. LABETALOL HCL [Concomitant]
  3. CLEVIPREX [Suspect]
     Dosage: 0.5 UG/KG, MIN, 0.5-1 UG/KG/MIN

REACTIONS (1)
  - TACHYCARDIA [None]
